FAERS Safety Report 6580653-2 (Version None)
Quarter: 2010Q1

REPORT INFORMATION
  Report Type: 
  Country: None (occurrence: None)
  Receive Date: 20100212
  Receipt Date: 20100204
  Transmission Date: 20100710
  Serious: Yes (Other)
  Sender: FDA-Public Use
  Company Number: AT-ABBOTT-10P-009-0622515-00

PATIENT
  Age: 60 Year
  Sex: Male

DRUGS (2)
  1. DEPAKENE [Suspect]
     Indication: BIPOLAR DISORDER
     Route: 048
  2. MIRTAZAPINE [Concomitant]
     Indication: DRUG USE FOR UNKNOWN INDICATION

REACTIONS (4)
  - DEAFNESS [None]
  - FATIGUE [None]
  - PARKINSONISM [None]
  - POLYNEUROPATHY [None]
